FAERS Safety Report 8362529-3 (Version None)
Quarter: 2012Q2

REPORT INFORMATION
  Report Type: 
  Country: None (occurrence: None)
  Receive Date: 20120514
  Receipt Date: 20120502
  Transmission Date: 20120825
  Serious: Yes (Life-Threatening, Hospitalization)
  Sender: FDA-Public Use
  Company Number: 2012082874

PATIENT
  Age: 73 Year
  Sex: Male

DRUGS (7)
  1. ORAMORPH SR [Concomitant]
  2. DILTIAZEM HYDROCHLORIDE [Concomitant]
  3. DOMPERIDONE (DOMPERIDONE) [Concomitant]
  4. ZOMORPH (MORPHINE) [Concomitant]
  5. ACETAMINOPHEN [Concomitant]
  6. OMEPRAZOLE [Concomitant]
  7. DALTEPARIN SODIUM [Suspect]
     Indication: LUNG NEOPLASM MALIGNANT
     Dates: start: 20111206, end: 20120401

REACTIONS (8)
  - PAIN [None]
  - METASTASES TO SPINE [None]
  - BACK PAIN [None]
  - INADEQUATE ANALGESIA [None]
  - LETHARGY [None]
  - LOWER RESPIRATORY TRACT INFECTION [None]
  - METASTASES TO ADRENALS [None]
  - MALAISE [None]
